FAERS Safety Report 23627806 (Version 1)
Quarter: 2024Q1

REPORT INFORMATION
  Report Type: Spontaneous
  Country: GB (occurrence: GB)
  Receive Date: 20240313
  Receipt Date: 20240313
  Transmission Date: 20240410
  Serious: Yes (Other)
  Sender: FDA-Public Use
  Company Number: GB-B.Braun Medical Inc.-2154360

PATIENT
  Age: 24 Year
  Sex: Female
  Weight: 90 kg

DRUGS (4)
  1. ACETAMINOPHEN [Suspect]
     Active Substance: ACETAMINOPHEN
  2. PSEUDOEPHEDRINE. [Concomitant]
     Active Substance: PSEUDOEPHEDRINE HYDROCHLORIDE
  3. BECLOMETHASONE DIPROPIONATE\FORMOTEROL FUMARATE [Concomitant]
     Active Substance: BECLOMETHASONE DIPROPIONATE\FORMOTEROL FUMARATE
  4. DESOGESTREL [Concomitant]
     Active Substance: DESOGESTREL

REACTIONS (9)
  - Hallucination [Recovered/Resolved]
  - Cold sweat [Recovered/Resolved]
  - Photosensitivity reaction [Recovered/Resolved]
  - Hypoaesthesia [Recovered/Resolved]
  - Photopsia [Recovered/Resolved]
  - Vision blurred [Recovered/Resolved]
  - Migraine [Recovered/Resolved]
  - Tremor [Recovered/Resolved]
  - Delusion [Recovered/Resolved]
